FAERS Safety Report 24342792 (Version 1)
Quarter: 2024Q3

REPORT INFORMATION
  Report Type: Spontaneous
  Country: JP (occurrence: None)
  Receive Date: 20240920
  Receipt Date: 20240920
  Transmission Date: 20241016
  Serious: Yes (Hospitalization)
  Sender: ORION
  Company Number: JP-Orion Corporation ORION PHARMA-ENTC2024-0111

PATIENT
  Age: 72 Year
  Sex: Female

DRUGS (1)
  1. STALEVO [Suspect]
     Active Substance: CARBIDOPA\ENTACAPONE\LEVODOPA
     Indication: Parkinson^s disease
     Dosage: LEVODOPA (UNKNOWN)-CARBIDOPA (UNKNOWN)-ENTACAPONE 100MG)

REACTIONS (5)
  - Wrong technique in product usage process [Unknown]
  - Dysphagia [Unknown]
  - Restlessness [Not Recovered/Not Resolved]
  - Pain [Unknown]
  - On and off phenomenon [Unknown]
